FAERS Safety Report 23880279 (Version 1)
Quarter: 2024Q2

REPORT INFORMATION
  Report Type: Spontaneous
  Country: US (occurrence: US)
  Receive Date: 20240521
  Receipt Date: 20240521
  Transmission Date: 20240716
  Serious: No
  Sender: FDA-Public Use
  Company Number: US-Vifor (International) Inc.-VIT-2024-04005

PATIENT
  Sex: Female

DRUGS (3)
  1. VELTASSA [Suspect]
     Active Substance: PATIROMER
     Indication: Hyperkalaemia
  2. VELTASSA [Suspect]
     Active Substance: PATIROMER
  3. KERENDIA [Concomitant]
     Active Substance: FINERENONE

REACTIONS (2)
  - Blood potassium increased [Unknown]
  - Product colour issue [Unknown]
